FAERS Safety Report 23990271 (Version 1)
Quarter: 2024Q2

REPORT INFORMATION
  Report Type: Spontaneous
  Country: ES (occurrence: ES)
  Receive Date: 20240619
  Receipt Date: 20240619
  Transmission Date: 20240715
  Serious: Yes (Life-Threatening, Hospitalization, Other)
  Sender: FDA-Public Use
  Company Number: None

PATIENT
  Age: 63 Year
  Sex: Male

DRUGS (3)
  1. NIVOLUMAB [Interacting]
     Active Substance: NIVOLUMAB
     Indication: Adenosquamous cell lung cancer
     Route: 042
     Dates: start: 20240213, end: 20240221
  2. CISPLATIN [Interacting]
     Active Substance: CISPLATIN
     Indication: Adenosquamous cell lung cancer
     Route: 042
     Dates: start: 20240213, end: 20240221
  3. GEMCITABINE HYDROCHLORIDE [Interacting]
     Active Substance: GEMCITABINE HYDROCHLORIDE
     Indication: Adenosquamous cell lung cancer
     Route: 042
     Dates: start: 20240213, end: 20240221

REACTIONS (2)
  - Febrile neutropenia [Recovered/Resolved]
  - Drug interaction [Unknown]

NARRATIVE: CASE EVENT DATE: 20240225
